FAERS Safety Report 22637932 (Version 2)
Quarter: 2023Q2

REPORT INFORMATION
  Report Type: Spontaneous
  Country: JP (occurrence: JP)
  Receive Date: 20230626
  Receipt Date: 20230629
  Transmission Date: 20230721
  Serious: Yes (Life-Threatening, Other)
  Sender: FDA-Public Use
  Company Number: JP-002147023-NVSJ2023JP010193

PATIENT
  Sex: Female

DRUGS (2)
  1. AFINITOR [Suspect]
     Active Substance: EVEROLIMUS
     Indication: Neuroendocrine tumour of the lung
     Dosage: UNK
     Route: 048
     Dates: start: 2021
  2. SANDOSTATIN [Concomitant]
     Active Substance: OCTREOTIDE ACETATE
     Indication: Neuroendocrine tumour of the lung
     Dosage: 20 MG
     Route: 065
     Dates: start: 202304

REACTIONS (6)
  - Cardiac arrest [Recovered/Resolved]
  - Cardiac arrest [Recovered/Resolved]
  - Neuroendocrine tumour of the lung [Unknown]
  - Malignant neoplasm progression [Unknown]
  - Metastases to heart [Unknown]
  - Serum serotonin increased [Unknown]

NARRATIVE: CASE EVENT DATE: 20230101
